FAERS Safety Report 7724589-X (Version None)
Quarter: 2011Q3

REPORT INFORMATION
  Report Type: 
  Country: None (occurrence: None)
  Receive Date: 20110901
  Receipt Date: 20110831
  Transmission Date: 20111222
  Serious: Yes (Death)
  Sender: FDA-Public Use
  Company Number: US-MYLANLABS-2008S1006345

PATIENT
  Age: 51 Year
  Sex: Female
  Weight: 92.53 kg

DRUGS (5)
  1. FENTANYL-100 [Suspect]
     Indication: PAIN
     Dosage: CHANGED PATCHES Q3D
     Route: 062
     Dates: end: 20060414
  2. OXYCODONE HCL [Concomitant]
     Indication: PAIN
  3. LYRICA [Concomitant]
  4. OPIOIDS [Concomitant]
     Indication: PAIN
  5. BENZODIAZEPINE [Concomitant]

REACTIONS (2)
  - RESPIRATORY ARREST [None]
  - OVERDOSE [None]
